FAERS Safety Report 5958691-X (Version None)
Quarter: 2008Q4

REPORT INFORMATION
  Report Type: 
  Country: None (occurrence: None)
  Receive Date: 20081119
  Receipt Date: 20081110
  Transmission Date: 20090506
  Serious: Yes (Other)
  Sender: FDA-Public Use
  Company Number: IT-PFIZER INC-2008096720

PATIENT
  Age: 37 Year
  Sex: Female

DRUGS (3)
  1. NELFINAVIR MESILATE [Suspect]
     Indication: HIV INFECTION
  2. LAMIVUDINE [Suspect]
  3. DIDANOSINE [Suspect]

REACTIONS (1)
  - DERMATITIS BULLOUS [None]
